FAERS Safety Report 20007037 (Version 1)
Quarter: 2021Q4

REPORT INFORMATION
  Report Type: Spontaneous
  Country: US (occurrence: US)
  Receive Date: 20211028
  Receipt Date: 20211028
  Transmission Date: 20220303
  Serious: No
  Sender: FDA-Public Use
  Company Number: US-PFIZER INC-2021412895

PATIENT
  Age: 62 Year
  Sex: Female
  Weight: 89.36 kg

DRUGS (1)
  1. POTASSIUM CHLORIDE [Suspect]
     Active Substance: POTASSIUM CHLORIDE
     Dosage: 10 MG, UNK

REACTIONS (3)
  - Pain [Unknown]
  - Burning sensation [Unknown]
  - Crying [Unknown]
